FAERS Safety Report 7630918-8 (Version None)
Quarter: 2011Q3

REPORT INFORMATION
  Report Type: 
  Country: None (occurrence: None)
  Receive Date: 20110725
  Receipt Date: 20110720
  Transmission Date: 20111222
  Serious: Yes (Death)
  Sender: FDA-Public Use
  Company Number: PT-BRISTOL-MYERS SQUIBB COMPANY-15583313

PATIENT
  Age: 55 Year
  Sex: Male
  Weight: 91 kg

DRUGS (3)
  1. CISPLATIN [Suspect]
     Indication: NON-SMALL CELL LUNG CANCER
     Dosage: ON 17-FEB-2011 STUDY THERAPY WAS HELD. ON 21FEB2011 WITHDRAWN FROM STUDY.,NO OF INF:5
     Route: 042
     Dates: start: 20101026, end: 20110127
  2. GEMZAR [Suspect]
     Indication: NON-SMALL CELL LUNG CANCER
     Dosage: ON 17-FEB-2011 STUDY THERAPY WAS HELD. ON 21FEB2011 WITHDRAWN FROM STUDY,NO OF INF:10
     Route: 042
     Dates: start: 20101026, end: 20110203
  3. CLOPIDOGREL BISULFATE [Concomitant]
     Indication: TACHYCARDIA
     Dates: start: 20110128, end: 20110221

REACTIONS (1)
  - PULMONARY HYPERTENSION [None]
